FAERS Safety Report 15476085 (Version 10)
Quarter: 2021Q4

REPORT INFORMATION
  Report Type: Report from Study
  Country: CA (occurrence: CA)
  Receive Date: 20181009
  Receipt Date: 20211210
  Transmission Date: 20220303
  Serious: Yes (Other)
  Sender: FDA-Public Use
  Company Number: PHHY2013CA148999

PATIENT
  Age: 59 Year
  Sex: Female

DRUGS (14)
  1. SANDOSTATIN [Suspect]
     Active Substance: OCTREOTIDE ACETATE
     Indication: Impaired gastric emptying
     Dosage: 100 UG, TID
     Route: 058
  2. SANDOSTATIN [Suspect]
     Active Substance: OCTREOTIDE ACETATE
     Indication: Breast cancer
     Dosage: 200 UG, TID
     Route: 058
  3. SANDOSTATIN [Suspect]
     Active Substance: OCTREOTIDE ACETATE
  4. SANDOSTATIN LAR DEPOT [Suspect]
     Active Substance: OCTREOTIDE ACETATE
     Indication: Breast cancer
     Dosage: UNK UNK, BIW
     Route: 030
  5. SANDOSTATIN LAR DEPOT [Suspect]
     Active Substance: OCTREOTIDE ACETATE
     Indication: Impaired gastric emptying
     Dosage: 60 MG, Q4W
     Route: 030
     Dates: start: 20140116
  6. SANDOSTATIN LAR DEPOT [Suspect]
     Active Substance: OCTREOTIDE ACETATE
     Dosage: 20 MG, QMO
     Route: 030
     Dates: start: 20140116
  7. SANDOSTATIN LAR DEPOT [Suspect]
     Active Substance: OCTREOTIDE ACETATE
     Dosage: 30 MG, QMO
     Route: 030
  8. SANDOSTATIN LAR DEPOT [Suspect]
     Active Substance: OCTREOTIDE ACETATE
     Dosage: 40 MG, QMO
     Route: 030
     Dates: start: 20140116
  9. SANDOSTATIN LAR DEPOT [Suspect]
     Active Substance: OCTREOTIDE ACETATE
     Dosage: 60 MG, Q4W
     Route: 030
     Dates: start: 202012
  10. SANDOSTATIN LAR DEPOT [Suspect]
     Active Substance: OCTREOTIDE ACETATE
     Dosage: 60 MG, Q4W
     Route: 030
     Dates: start: 20210106
  11. MORPHINE [Suspect]
     Active Substance: MORPHINE
     Indication: Product used for unknown indication
     Dosage: UNK
     Route: 065
  12. DEXILANT [Concomitant]
     Active Substance: DEXLANSOPRAZOLE
     Indication: Product used for unknown indication
     Dosage: 60 MG, QD
     Route: 048
  13. VITAMIN B12 [Concomitant]
     Active Substance: CYANOCOBALAMIN
     Indication: Product used for unknown indication
     Dosage: 1 DF, QMO
     Route: 030
  14. DOCUSATE SODIUM [Concomitant]
     Active Substance: DOCUSATE SODIUM
     Indication: Product used for unknown indication
     Dosage: UNK
     Route: 048

REACTIONS (26)
  - Pancreatitis [Unknown]
  - Cholelithiasis [Unknown]
  - Hypersensitivity [Unknown]
  - Rash [Recovering/Resolving]
  - Dyspnoea [Unknown]
  - Peripheral swelling [Unknown]
  - Diabetes mellitus [Unknown]
  - Muscle spasms [Unknown]
  - Breast mass [Unknown]
  - Blood pressure increased [Unknown]
  - Ankle fracture [Unknown]
  - Fall [Unknown]
  - Abdominal discomfort [Unknown]
  - Urinary tract infection [Unknown]
  - Vomiting [Unknown]
  - Nausea [Recovered/Resolved]
  - Constipation [Recovered/Resolved]
  - Abdominal pain [Unknown]
  - Diarrhoea [Unknown]
  - Headache [Unknown]
  - Abdominal pain upper [Unknown]
  - Psoriasis [Unknown]
  - Injection site pain [Unknown]
  - Injection site hypoaesthesia [Unknown]
  - Product use in unapproved indication [Unknown]
  - Drug ineffective [Unknown]

NARRATIVE: CASE EVENT DATE: 20140616
